FAERS Safety Report 18986923 (Version 1)
Quarter: 2021Q1

REPORT INFORMATION
  Report Type: Spontaneous
  Country: US (occurrence: US)
  Receive Date: 20210309
  Receipt Date: 20210309
  Transmission Date: 20210420
  Serious: No
  Sender: FDA-Public Use
  Company Number: None

PATIENT
  Age: 69 Year
  Sex: Female
  Weight: 90 kg

DRUGS (6)
  1. METFORMIN 500MG [Suspect]
     Active Substance: METFORMIN HYDROCHLORIDE
     Indication: DIABETES MELLITUS
     Dosage: ?          QUANTITY:2 TABLET(S);?
     Route: 048
     Dates: start: 20190506
  2. WALGREENS EYE HEALTH [Concomitant]
  3. CALCIUM [Concomitant]
     Active Substance: CALCIUM
  4. METAMUCIL [Concomitant]
     Active Substance: PLANTAGO SEED
  5. NATURE MADE TRIPLE FLEX [Concomitant]
  6. NATURE MADE CHLESTOFF + B COMPLEX [Concomitant]

REACTIONS (3)
  - Skin disorder [None]
  - Alopecia [None]
  - Nail disorder [None]

NARRATIVE: CASE EVENT DATE: 20190606
